FAERS Safety Report 14223562 (Version 2)
Quarter: 2017Q4

REPORT INFORMATION
  Report Type: Report from Study
  Country: BR (occurrence: BR)
  Receive Date: 20171124
  Receipt Date: 20171220
  Transmission Date: 20180321
  Serious: Yes (Other)
  Sender: FDA-Public Use
  Company Number: PHHY2017BR172195

PATIENT
  Sex: Male
  Weight: 71 kg

DRUGS (4)
  1. DIOVAN HCT [Suspect]
     Active Substance: HYDROCHLOROTHIAZIDE\VALSARTAN
     Dosage: 1 DF (HYDROCHLOROTHIAZIDE 12.5/VALSARTAN 160 MG), QD IN THE MORNING
     Route: 048
     Dates: start: 2011
  2. DIOVAN HCT [Suspect]
     Active Substance: HYDROCHLOROTHIAZIDE\VALSARTAN
     Indication: HYPERTENSION
     Dosage: 1 DF, QD
     Route: 048
     Dates: start: 2009
  3. DIOVAN [Suspect]
     Active Substance: VALSARTAN
     Indication: HYPERTENSION
     Dosage: 80 MG, QD
     Route: 048
  4. ATENOLOL. [Suspect]
     Active Substance: ATENOLOL
     Indication: HYPERTENSION
     Dosage: 25 MG, BID (1 IN THE MORNING AND 1 AT NIGHT)
     Route: 048

REACTIONS (5)
  - Hypertriglyceridaemia [Recovering/Resolving]
  - Food allergy [Recovering/Resolving]
  - Drug ineffective [Unknown]
  - Eye haemorrhage [Not Recovered/Not Resolved]
  - Blood cholesterol increased [Recovering/Resolving]
